FAERS Safety Report 4418178-2 (Version None)
Quarter: 2004Q3

REPORT INFORMATION
  Report Type: 
  Country: None (occurrence: None)
  Receive Date: 20040805
  Receipt Date: 20040805
  Transmission Date: 20050211
  Serious: Yes (Hospitalization)
  Sender: FDA-Public Use
  Company Number: None

PATIENT
  Sex: Male
  Weight: 89 kg

DRUGS (2)
  1. PHASE II TRIAL OF SUBCUTANEOUS INFX26 + [Suspect]
     Dosage: VACCINE THERAPY
     Dates: start: 20010402
  2. IL2 W + WOTJPIT DROSOPHILIA CELL [Suspect]
     Dosage: IV
     Route: 042
     Dates: start: 20040618

REACTIONS (6)
  - CIRCULATORY COLLAPSE [None]
  - CORONARY ANGIOPLASTY [None]
  - HAEMOGLOBIN DECREASED [None]
  - HAEMORRHAGE [None]
  - MALIGNANT MELANOMA [None]
  - MYOCARDIAL INFARCTION [None]
